FAERS Safety Report 9279339 (Version 1)
Quarter: 2013Q2

REPORT INFORMATION
  Report Type: Spontaneous
  Country: US (occurrence: US)
  Receive Date: 20130508
  Receipt Date: 20130508
  Transmission Date: 20140414
  Serious: Yes (Other)
  Sender: FDA-Public Use
  Company Number: US-ELI_LILLY_AND_COMPANY-US201305000209

PATIENT
  Age: 65 Year
  Sex: Female

DRUGS (1)
  1. HUMULIN NPH [Suspect]
     Indication: DIABETES MELLITUS
     Dosage: 50 U, BID

REACTIONS (4)
  - Myocardial infarction [Unknown]
  - Gastric perforation [Unknown]
  - Cerebrovascular accident [Unknown]
  - Glaucoma [Unknown]
